FAERS Safety Report 8731528 (Version 5)
Quarter: 2012Q4

REPORT INFORMATION
  Report Type: 
  Country: US (occurrence: US)
  Receive Date: 20120820
  Receipt Date: 20120907
  Transmission Date: 20130627
  Serious: Yes (Life-Threatening, Hospitalization)
  Sender: FDA-Public Use
  Company Number: US-JNJFOC-20120808222

PATIENT
  Age: 80 Year
  Sex: Male
  Weight: 66 kg

DRUGS (8)
  1. RIVAROXABAN [Suspect]
     Indication: CEREBROVASCULAR ACCIDENT PROPHYLAXIS
     Route: 048
     Dates: start: 201203, end: 20120605
  2. RIVAROXABAN [Suspect]
     Indication: ATRIAL FIBRILLATION
     Route: 048
     Dates: start: 201203, end: 20120605
  3. ASPIRIN [Concomitant]
  4. METFORMIN [Concomitant]
  5. LISINOPRIL [Concomitant]
  6. CRESTOR [Concomitant]
  7. DIOVAN [Concomitant]
  8. METOPROLOL [Concomitant]

REACTIONS (1)
  - Subdural haematoma [Recovering/Resolving]
